FAERS Safety Report 11503217 (Version 1)
Quarter: 2015Q3

REPORT INFORMATION
  Report Type: Spontaneous
  Country: US (occurrence: US)
  Receive Date: 20150914
  Receipt Date: 20150914
  Transmission Date: 20151125
  Serious: No
  Sender: FDA-Public Use
  Company Number: US-ASTELLAS-2015US022989

PATIENT
  Sex: Male

DRUGS (2)
  1. XTANDI [Suspect]
     Active Substance: ENZALUTAMIDE
     Indication: PROSTATE CANCER
     Dosage: 160 MG (4 X 40 MG), ONCE DAILY
     Route: 048
     Dates: start: 20150520
  2. XTANDI [Suspect]
     Active Substance: ENZALUTAMIDE
     Dosage: 160 MG (4 X 40 MG), ONCE DAILY
     Route: 048
     Dates: start: 20150622, end: 20150717

REACTIONS (2)
  - Throat irritation [Recovered/Resolved]
  - Wrong technique in product usage process [Unknown]
